FAERS Safety Report 8002996-8 (Version None)
Quarter: 2011Q4

REPORT INFORMATION
  Report Type: 
  Country: None (occurrence: None)
  Receive Date: 20111222
  Receipt Date: 20110720
  Transmission Date: 20120403
  Serious: No
  Sender: FDA-Public Use
  Company Number: US-GLAXOSMITHKLINE-A0937490A

PATIENT
  Age: 80 Year
  Sex: Male

DRUGS (5)
  1. ALLOPURINOL [Concomitant]
  2. LISINOPRIL [Concomitant]
  3. AVODART [Suspect]
     Indication: PROSTATOMEGALY
     Dosage: .5MG PER DAY
     Route: 048
     Dates: start: 20110509
  4. HYDROCHLOROTHIAZIDE [Concomitant]
  5. TAMSULOSIN HCL [Concomitant]

REACTIONS (4)
  - LIBIDO DECREASED [None]
  - FATIGUE [None]
  - ABDOMINAL DISTENSION [None]
  - WEIGHT INCREASED [None]
